FAERS Safety Report 8407525-2 (Version None)
Quarter: 2012Q2

REPORT INFORMATION
  Report Type: 
  Country: None (occurrence: None)
  Receive Date: 20120604
  Receipt Date: 20120528
  Transmission Date: 20120825
  Serious: Yes (Other)
  Sender: FDA-Public Use
  Company Number: BR-JNJFOC-20120516986

PATIENT
  Sex: Female
  Weight: 82 kg

DRUGS (7)
  1. NICORETTE [Suspect]
     Indication: SMOKING CESSATION THERAPY
     Dosage: 8 TO 12 GUMS PER DAY
     Route: 048
     Dates: start: 20110101
  2. METFORMIN HYDROCHLORIDE [Concomitant]
     Indication: DIABETES MELLITUS
     Route: 065
  3. DIAMICRON [Concomitant]
     Indication: DIABETES MELLITUS
     Route: 065
  4. VICTOZA [Concomitant]
     Indication: DIABETES MELLITUS
     Route: 065
  5. SINVASTATINA [Concomitant]
     Indication: BLOOD CHOLESTEROL
     Route: 065
  6. ASPIRIN [Concomitant]
     Indication: CARDIAC DISORDER
     Route: 065
  7. WELLBUTRIN [Concomitant]
     Indication: ANXIETY
     Route: 065

REACTIONS (4)
  - ORAL PAIN [None]
  - NICOTINE DEPENDENCE [None]
  - TOOTH EROSION [None]
  - INCORRECT DRUG ADMINISTRATION DURATION [None]
